FAERS Safety Report 9860035 (Version 2)
Quarter: 2014Q2

REPORT INFORMATION
  Report Type: Spontaneous
  Country: MX (occurrence: MX)
  Receive Date: 20140131
  Receipt Date: 20140404
  Transmission Date: 20141212
  Serious: Yes (Death)
  Sender: FDA-Public Use
  Company Number: US-ASTRAZENECA-2014SE06189

PATIENT
  Sex: Male
  Weight: 2.5 kg

DRUGS (5)
  1. SYNAGIS [Suspect]
     Indication: HEART DISEASE CONGENITAL
     Route: 030
     Dates: start: 201310, end: 201310
  2. SYNAGIS [Suspect]
     Indication: TRISOMY 21
     Route: 030
     Dates: start: 201310, end: 201310
  3. SYNAGIS [Suspect]
     Indication: HEART DISEASE CONGENITAL
     Route: 030
  4. SYNAGIS [Suspect]
     Indication: TRISOMY 21
     Route: 030
  5. HUMIRA [Concomitant]

REACTIONS (5)
  - Cardiac failure [Fatal]
  - Respiratory distress [Fatal]
  - Dehydration [Fatal]
  - Cardiogenic shock [Fatal]
  - Haemodynamic instability [Fatal]
